FAERS Safety Report 25600711 (Version 1)
Quarter: 2025Q3

REPORT INFORMATION
  Report Type: Other
  Country: EU (occurrence: EU)
  Receive Date: 20250724
  Receipt Date: 20250724
  Transmission Date: 20251020
  Serious: Yes (Other)
  Sender: ZYDUS PHARM
  Company Number: None

PATIENT

DRUGS (5)
  1. GABAPENTIN [Interacting]
     Active Substance: GABAPENTIN
     Indication: Bipolar disorder
     Route: 048
  2. OLANZAPINE [Interacting]
     Active Substance: OLANZAPINE
     Indication: Bipolar disorder
     Route: 048
     Dates: end: 20250624
  3. MIRTAZAPINE [Interacting]
     Active Substance: MIRTAZAPINE
     Indication: Bipolar disorder
     Route: 048
     Dates: end: 20250616
  4. CYAMEMAZINE [Interacting]
     Active Substance: CYAMEMAZINE
     Indication: Bipolar disorder
     Route: 048
     Dates: start: 202504, end: 20250616
  5. OXAZEPAM [Interacting]
     Active Substance: OXAZEPAM
     Indication: Bipolar disorder
     Route: 048

REACTIONS (2)
  - Disorientation [Recovering/Resolving]
  - Urinary retention [Recovering/Resolving]

NARRATIVE: CASE EVENT DATE: 20250616
